FAERS Safety Report 6151651-8 (Version None)
Quarter: 2009Q2

REPORT INFORMATION
  Report Type: 
  Country: None (occurrence: None)
  Receive Date: 20090410
  Receipt Date: 20090331
  Transmission Date: 20091009
  Serious: Yes (Other)
  Sender: FDA-Public Use
  Company Number: CN-PFIZER INC-2009194295

PATIENT

DRUGS (1)
  1. VIAGRA [Suspect]
     Route: 048
     Dates: start: 20090301

REACTIONS (1)
  - LOSS OF CONSCIOUSNESS [None]
